FAERS Safety Report 14073604 (Version 2)
Quarter: 2018Q1

REPORT INFORMATION
  Report Type: Report from Study
  Country: US (occurrence: US)
  Receive Date: 20171011
  Receipt Date: 20180312
  Transmission Date: 20180508
  Serious: Yes (Hospitalization, Disabling, Other)
  Sender: FDA-Public Use
  Company Number: US-SHIRE-US201724681

PATIENT

DRUGS (16)
  1. MERCAPTOPURINE. [Suspect]
     Active Substance: MERCAPTOPURINE
     Indication: ACUTE LYMPHOCYTIC LEUKAEMIA
     Dosage: 125 MG, 2X A WEEK
     Route: 048
     Dates: start: 20170619, end: 20170626
  2. CYTARABINE. [Suspect]
     Active Substance: CYTARABINE
     Dosage: 137.25 MG, (DAILY X 4 DAYS)
     Route: 042
     Dates: start: 20170505, end: 20170726
  3. VINCRISTINE [Suspect]
     Active Substance: VINCRISTINE
     Indication: ACUTE LYMPHOCYTIC LEUKAEMIA
     Dosage: 2 MG, UNK
     Route: 042
     Dates: start: 20170710
  4. RUXOLITINIB                        /07210602/ [Suspect]
     Active Substance: RUXOLITINIB PHOSPHATE
     Indication: ACUTE LYMPHOCYTIC LEUKAEMIA
     Dosage: 90 MG, 2X/DAY:BID
     Route: 048
     Dates: start: 20170619, end: 20170726
  5. PEGASPARGASE [Suspect]
     Active Substance: PEGASPARGASE
     Dosage: 4475 IU, UNK
     Route: 042
     Dates: start: 20170506
  6. CYTARABINE. [Suspect]
     Active Substance: CYTARABINE
     Indication: ACUTE LYMPHOCYTIC LEUKAEMIA
     Dosage: 138.75 MG, UNK
     Route: 042
     Dates: start: 20170503
  7. MERCAPTOPURINE. [Suspect]
     Active Substance: MERCAPTOPURINE
     Dosage: 100 MG, X5 DAYS A WEEK
     Route: 065
     Dates: start: 20170619, end: 20170626
  8. CYCLOPHOSPHAMIDE. [Suspect]
     Active Substance: CYCLOPHOSPHAMIDE
     Dosage: 1790 MG, 1X A MONTH
     Route: 042
     Dates: start: 20170719
  9. PEGASPARGASE [Suspect]
     Active Substance: PEGASPARGASE
     Indication: ACUTE LYMPHOCYTIC LEUKAEMIA
     Dosage: 4475 IU, UNK
     Route: 042
     Dates: start: 20170703
  10. RUXOLITINIB                        /07210602/ [Suspect]
     Active Substance: RUXOLITINIB PHOSPHATE
     Dosage: 90 MG, 2X/DAY:BID
     Route: 048
     Dates: start: 20170829
  11. VINCRISTINE [Suspect]
     Active Substance: VINCRISTINE
     Dosage: 2 MG, UNK
     Route: 042
     Dates: start: 20170503
  12. METHOTREXATE. [Suspect]
     Active Substance: METHOTREXATE
     Dosage: 15 MG, UNK
     Route: 037
     Dates: start: 20170510
  13. CYCLOPHOSPHAMIDE. [Suspect]
     Active Substance: CYCLOPHOSPHAMIDE
     Indication: ACUTE LYMPHOCYTIC LEUKAEMIA
     Dosage: 1790 MG, 1X A MONTH
     Route: 042
     Dates: start: 20170717
  14. METHOTREXATE. [Suspect]
     Active Substance: METHOTREXATE
     Indication: ACUTE LYMPHOCYTIC LEUKAEMIA
     Dosage: 15 MG, UNK
     Route: 037
     Dates: start: 20170710
  15. THIOGUANINE [Suspect]
     Active Substance: THIOGUANINE
     Indication: ACUTE LYMPHOCYTIC LEUKAEMIA
     Dosage: 60 MG, UNK
     Route: 048
     Dates: start: 20171207
  16. THIOGUANINE [Suspect]
     Active Substance: THIOGUANINE
     Dosage: 40 MG, 1X/DAY:QD
     Route: 048
     Dates: start: 20171207

REACTIONS (6)
  - Cellulitis [Recovering/Resolving]
  - Febrile neutropenia [Recovered/Resolved]
  - Bacterial infection [Recovering/Resolving]
  - Sepsis [Recovered/Resolved]
  - Encopresis [Recovering/Resolving]
  - Perirectal abscess [Recovering/Resolving]

NARRATIVE: CASE EVENT DATE: 20170724
